FAERS Safety Report 4359824-1 (Version None)
Quarter: 2004Q2

REPORT INFORMATION
  Report Type: 
  Country: None (occurrence: None)
  Receive Date: 20040514
  Receipt Date: 20040505
  Transmission Date: 20050107
  Serious: Yes (Other)
  Sender: FDA-Public Use
  Company Number: 2004030444

PATIENT
  Sex: Male

DRUGS (6)
  1. DILANTIN [Suspect]
     Indication: ILL-DEFINED DISORDER
     Dosage: 400 MG (200 MG, BID), UNKNOWN
  2. NEURONTIN [Suspect]
     Indication: ILL-DEFINED DISORDER
     Dosage: 3600 MG (900 MG, QID), UNKNOWN
     Dates: start: 20020701
  3. BENZATROPINE MESILATE [Concomitant]
  4. LORAZEPAM [Concomitant]
  5. THIORIDAZINE [Concomitant]
  6. DIAZEPAM [Concomitant]

REACTIONS (2)
  - CONVULSION [None]
  - DRUG LEVEL BELOW THERAPEUTIC [None]
